FAERS Safety Report 4325465-5 (Version None)
Quarter: 2004Q1

REPORT INFORMATION
  Report Type: 
  Country: None (occurrence: None)
  Receive Date: 20040324
  Receipt Date: 20040315
  Transmission Date: 20041129
  Serious: Yes (Hospitalization)
  Sender: FDA-Public Use
  Company Number: NUBN20040005

PATIENT
  Age: 69 Year
  Sex: Female
  Weight: 54.4316 kg

DRUGS (4)
  1. NUBAIN [Suspect]
     Indication: PAIN
     Dosage: UNK ONCE IM
     Route: 030
     Dates: start: 20040312, end: 20040312
  2. MORPHINE SULFATE [Concomitant]
  3. MS CONTIN [Concomitant]
  4. BACLOFEN [Concomitant]

REACTIONS (5)
  - AMNESIA [None]
  - CONDITION AGGRAVATED [None]
  - DEPRESSED LEVEL OF CONSCIOUSNESS [None]
  - MUSCLE SPASMS [None]
  - PAIN [None]
